FAERS Safety Report 23808063 (Version 1)
Quarter: 2024Q2

REPORT INFORMATION
  Report Type: Spontaneous
  Country: BR (occurrence: BR)
  Receive Date: 20240502
  Receipt Date: 20240502
  Transmission Date: 20240716
  Serious: Yes (Hospitalization)
  Sender: FDA-Public Use
  Company Number: BR-RISINGPHARMA-BR-2024RISLIT00108

PATIENT
  Age: 64 Year
  Sex: Male

DRUGS (3)
  1. AMANTADINE HYDROCHLORIDE [Suspect]
     Active Substance: AMANTADINE HYDROCHLORIDE
     Indication: Parkinson^s disease
     Route: 065
  2. AMANTADINE HYDROCHLORIDE [Suspect]
     Active Substance: AMANTADINE HYDROCHLORIDE
     Dosage: ONE TABLET TWICE DAILY
     Route: 065
  3. BENSERAZIDE\LEVODOPA [Concomitant]
     Active Substance: BENSERAZIDE\LEVODOPA
     Indication: Parkinson^s disease
     Dosage: 100 MG LEVODOPA + 25 MG BENSERAZIDE
     Route: 065

REACTIONS (1)
  - Myoclonus [Recovered/Resolved]
